FAERS Safety Report 4776854-6 (Version None)
Quarter: 2005Q3

REPORT INFORMATION
  Report Type: 
  Country: None (occurrence: None)
  Receive Date: 20050914
  Receipt Date: 20040909
  Transmission Date: 20060218
  Serious: Yes (Hospitalization)
  Sender: FDA-Public Use
  Company Number: 163-20785-04090201

PATIENT
  Age: 61 Year
  Sex: Male

DRUGS (13)
  1. THALOMID [Suspect]
     Indication: MULTIPLE MYELOMA
     Dosage: 100 MG, QHS, ORAL
     Route: 048
     Dates: start: 20020528
  2. VELCADE [Suspect]
     Indication: MULTIPLE MYELOMA
     Dosage: 1.0MG/M^2 ON DAY 1, 2, 4, 5, 8, 9 AND 11 Q 28 DAYS, 35 WK SCHEDULE, INTRAVENOUS
     Route: 042
     Dates: start: 20030311, end: 20040402
  3. DEXAMETHASONE [Concomitant]
  4. LIPITOR [Concomitant]
  5. PREVACID [Concomitant]
  6. QUINIDINE HCL [Concomitant]
  7. FAMVIR [Concomitant]
  8. SYNTHROID [Concomitant]
  9. ALLOPURINOL [Concomitant]
  10. FLONASE [Concomitant]
  11. LEVAQUIN [Concomitant]
  12. PAXIL [Concomitant]
  13. MAGNESIUM [Concomitant]

REACTIONS (9)
  - ATRIAL FIBRILLATION [None]
  - BACTERAEMIA [None]
  - CHILLS [None]
  - DYSPNOEA [None]
  - HYPERHIDROSIS [None]
  - MALAISE [None]
  - NOCTURNAL DYSPNOEA [None]
  - PYREXIA [None]
  - TACHYCARDIA [None]
